FAERS Safety Report 5176876-X (Version None)
Quarter: 2006Q4

REPORT INFORMATION
  Report Type: 
  Country: None (occurrence: None)
  Receive Date: 20061218
  Receipt Date: 20060927
  Transmission Date: 20070319
  Serious: Yes (Other)
  Sender: FDA-Public Use
  Company Number: US-BAYER-200614143BCC

PATIENT
  Age: 45 Year
  Sex: Female

DRUGS (1)
  1. DOMEBORO [Suspect]
     Indication: DRUG ADMINISTRATION ERROR
     Route: 048
     Dates: start: 20060927

REACTIONS (2)
  - ACCIDENTAL EXPOSURE [None]
  - NO ADVERSE DRUG EFFECT [None]
